FAERS Safety Report 16453252 (Version 1)
Quarter: 2019Q2

REPORT INFORMATION
  Report Type: Spontaneous
  Country: US (occurrence: US)
  Receive Date: 20190619
  Receipt Date: 20190619
  Transmission Date: 20190711
  Serious: No
  Sender: FDA-Public Use
  Company Number: US-APOTEX-2019AP015212

PATIENT
  Age: 50 Year
  Sex: Male

DRUGS (1)
  1. TEMOZOLOMIDE. [Suspect]
     Active Substance: TEMOZOLOMIDE
     Indication: GANGLIONEUROMA
     Dosage: UNK
     Route: 065

REACTIONS (3)
  - Off label use [Unknown]
  - Nausea [Unknown]
  - Vomiting [Unknown]
